FAERS Safety Report 6382001-X (Version None)
Quarter: 2009Q3

REPORT INFORMATION
  Report Type: 
  Country: None (occurrence: None)
  Receive Date: 20090930
  Receipt Date: 20090925
  Transmission Date: 20100115
  Serious: Yes (Other)
  Sender: FDA-Public Use
  Company Number: FR-WYE-G04508909

PATIENT
  Age: 29 Year
  Sex: Female
  Weight: 60 kg

DRUGS (2)
  1. RHINADVIL [Suspect]
     Indication: NASOPHARYNGITIS
     Dosage: 2 TABLETS TWICE DAILY WITHIN A TOO SHORT ADMINISTRATION INTERVAL
     Route: 048
     Dates: start: 20090911, end: 20090911
  2. TERALITHE [Concomitant]
     Dosage: UNKNOWN
     Route: 048
     Dates: start: 20090401

REACTIONS (5)
  - INAPPROPRIATE SCHEDULE OF DRUG ADMINISTRATION [None]
  - MEDICATION ERROR [None]
  - PILOERECTION [None]
  - TREMOR [None]
  - VERTIGO [None]
